FAERS Safety Report 9469951 (Version 3)
Quarter: 2013Q4

REPORT INFORMATION
  Report Type: Spontaneous
  Country: GB (occurrence: GB)
  Receive Date: 20130822
  Receipt Date: 20131029
  Transmission Date: 20140711
  Serious: Yes (Hospitalization)
  Sender: FDA-Public Use
  Company Number: PHFR2013GB004821

PATIENT
  Age: 30 Year
  Sex: Male

DRUGS (4)
  1. CLOZARIL [Suspect]
     Indication: SCHIZOPHRENIA
     Route: 048
     Dates: start: 20130713
  2. CLOZARIL [Suspect]
     Dosage: 300 MG,
     Route: 048
     Dates: start: 20130717
  3. AMISULPRIDE [Suspect]
     Dosage: 40 MG,
     Route: 048
  4. PROCYCLIDINE [Suspect]

REACTIONS (3)
  - Testicular abscess [Recovered/Resolved]
  - White blood cell count increased [Not Recovered/Not Resolved]
  - Neutrophil count increased [Not Recovered/Not Resolved]
